FAERS Safety Report 8802704 (Version 1)
Quarter: 2012Q4

REPORT INFORMATION
  Report Type: 
  Country: JP (occurrence: JP)
  Receive Date: 20120921
  Receipt Date: 20120921
  Transmission Date: 20130627
  Serious: Yes (Hospitalization)
  Sender: FDA-Public Use
  Company Number: JP-009507513-2011SP049988

PATIENT
  Age: 4 Year
  Sex: Female
  Weight: 18.4 kg

DRUGS (3)
  1. CLARITIN [Suspect]
     Indication: RHINITIS ALLERGIC
     Dosage: 0.5 g, QD
     Route: 048
     Dates: start: 20100413, end: 20111101
  2. CLARITIN [Suspect]
     Indication: ASTHMA
  3. KIPRES [Concomitant]
     Indication: RHINITIS ALLERGIC
     Dosage: 4 mg, UNK
     Route: 048
     Dates: start: 20090804

REACTIONS (3)
  - Drug-induced liver injury [Recovering/Resolving]
  - Asthma [None]
  - Hepatic infiltration eosinophilic [None]
